FAERS Safety Report 7138691-7 (Version None)
Quarter: 2010Q4

REPORT INFORMATION
  Report Type: 
  Country: None (occurrence: None)
  Receive Date: 20101122
  Receipt Date: 20101111
  Transmission Date: 20110411
  Serious: Yes (Hospitalization)
  Sender: FDA-Public Use
  Company Number: 2010US004660

PATIENT
  Age: 67 Year
  Sex: Female
  Weight: 108 kg

DRUGS (11)
  1. PROGRAF [Suspect]
     Indication: RENAL TRANSPLANT
     Dosage: 1 MG, BID, ORAL
     Route: 048
     Dates: start: 19991029, end: 20101020
  2. LISINOPRIL [Concomitant]
  3. ZOLOFT [Concomitant]
  4. PREDNISONE [Concomitant]
  5. METOPROLOL [Concomitant]
  6. CELLCEPT [Concomitant]
  7. CALCIUM +D (CALCIUM, ERGOCALCIFEROL) [Concomitant]
  8. LASIX [Concomitant]
  9. PRILOSEC (OMEPRAZOLE) [Concomitant]
  10. SODIUM BICARBONATE [Concomitant]
  11. ZOCOR [Concomitant]

REACTIONS (9)
  - BRAIN ABSCESS [None]
  - BRAIN NEOPLASM [None]
  - CEREBROVASCULAR ACCIDENT [None]
  - GASTROINTESTINAL HAEMORRHAGE [None]
  - HYPOXIA [None]
  - LISTERIA SEPSIS [None]
  - POST PROCEDURAL COMPLICATION [None]
  - RENAL FAILURE ACUTE [None]
  - ROAD TRAFFIC ACCIDENT [None]
